FAERS Safety Report 5320006-8 (Version None)
Quarter: 2007Q2

REPORT INFORMATION
  Report Type: 
  Country: None (occurrence: None)
  Receive Date: 20070509
  Receipt Date: 20070507
  Transmission Date: 20071010
  Serious: Yes (Other)
  Sender: FDA-Public Use
  Company Number: US-BRISTOL-MYERS SQUIBB COMPANY-13771308

PATIENT
  Age: 48 Year
  Sex: Male

DRUGS (1)
  1. MITOMYCIN [Suspect]
     Indication: MALIGNANT TUMOUR EXCISION
     Route: 033

REACTIONS (2)
  - HYDROCELE [None]
  - SCROTAL ULCER [None]
